FAERS Safety Report 6112289-1 (Version None)
Quarter: 2009Q1

REPORT INFORMATION
  Report Type: 
  Country: None (occurrence: None)
  Receive Date: 20090312
  Receipt Date: 20090302
  Transmission Date: 20090719
  Serious: Yes (Life-Threatening, Hospitalization, Other)
  Sender: FDA-Public Use
  Company Number: GB-RANBAXY-2009RR-22312

PATIENT
  Age: 68 Year
  Sex: Male

DRUGS (11)
  1. CIPROFLOXACIN [Suspect]
     Indication: INFECTION
     Dosage: 500 MG, BID
     Route: 048
     Dates: start: 20090213, end: 20090216
  2. ADCAL-D3 [Concomitant]
  3. ALLOPURINOL [Concomitant]
  4. AMITRIPTYLINE [Concomitant]
  5. ASPIRIN [Concomitant]
  6. ACETAMINOPHEN W/ CODEINE [Concomitant]
  7. DEXAMETHASONE [Concomitant]
  8. DOMPERIDONE [Concomitant]
  9. GRANISETRON [Concomitant]
  10. OMEPRAZOLE [Concomitant]
  11. THALIDOMIDE [Concomitant]

REACTIONS (2)
  - GRAND MAL CONVULSION [None]
  - UNRESPONSIVE TO STIMULI [None]
